FAERS Safety Report 21226752 (Version 3)
Quarter: 2022Q4

REPORT INFORMATION
  Report Type: Spontaneous
  Country: US (occurrence: None)
  Receive Date: 20220818
  Receipt Date: 20221006
  Transmission Date: 20230112
  Serious: No
  Sender: FDA-Public Use
  Company Number: 2022A289533

PATIENT
  Age: 15009 Day
  Sex: Female

DRUGS (2)
  1. FASENRA [Suspect]
     Active Substance: BENRALIZUMAB
     Indication: Asthma
     Route: 058
  2. FASENRA [Suspect]
     Active Substance: BENRALIZUMAB
     Indication: Asthma
     Route: 058
     Dates: start: 2021

REACTIONS (8)
  - Hypersensitivity [Not Recovered/Not Resolved]
  - Thermal burn [Not Recovered/Not Resolved]
  - Device use issue [Unknown]
  - Injection site paraesthesia [Not Recovered/Not Resolved]
  - Needle issue [Unknown]
  - Wrong technique in device usage process [Unknown]
  - Device leakage [Unknown]
  - Product label confusion [Unknown]

NARRATIVE: CASE EVENT DATE: 20220816
